FAERS Safety Report 15883819 (Version 3)
Quarter: 2019Q1

REPORT INFORMATION
  Report Type: Spontaneous
  Country: US (occurrence: US)
  Receive Date: 20190129
  Receipt Date: 20190325
  Transmission Date: 20190417
  Serious: Yes (Other)
  Sender: FDA-Public Use
  Company Number: US-ALKERMES INC.-ALK-2019-000423

PATIENT
  Age: 24 Year
  Sex: Female
  Weight: 64.85 kg

DRUGS (2)
  1. VIVITROL [Suspect]
     Active Substance: NALTREXONE
     Indication: DRUG DEPENDENCE
     Dosage: 380 MG, QMO
     Route: 030
     Dates: start: 20190116, end: 20190211
  2. VIVITROL [Suspect]
     Active Substance: NALTREXONE
     Dosage: 380 MG, QMO
     Route: 030
     Dates: start: 20180822, end: 20190116

REACTIONS (2)
  - Injection site reaction [Recovering/Resolving]
  - Injection site abscess [Recovering/Resolving]

NARRATIVE: CASE EVENT DATE: 20190124
